FAERS Safety Report 4477929-1 (Version None)
Quarter: 2004Q4

REPORT INFORMATION
  Report Type: 
  Country: None (occurrence: None)
  Receive Date: 20041018
  Receipt Date: 20041006
  Transmission Date: 20050328
  Serious: Yes (Life-Threatening, Hospitalization, Disabling, Other)
  Sender: FDA-Public Use
  Company Number: US-MERCK-0410USA00949

PATIENT
  Sex: Male

DRUGS (4)
  1. [THERAPY UNSPECIFIED] [Concomitant]
     Route: 065
  2. XANAX [Concomitant]
     Route: 065
  3. ZESTRIL [Concomitant]
     Route: 065
  4. VIOXX [Suspect]
     Indication: ARTHRALGIA
     Route: 048
     Dates: start: 20000101, end: 20041002

REACTIONS (3)
  - CHEST PAIN [None]
  - HERNIA [None]
  - MYOCARDIAL INFARCTION [None]
